FAERS Safety Report 11598035 (Version 1)
Quarter: 2015Q4

REPORT INFORMATION
  Report Type: Spontaneous
  Country: US (occurrence: US)
  Receive Date: 20151006
  Receipt Date: 20151006
  Transmission Date: 20160304
  Serious: No
  Sender: FDA-Public Use
  Company Number: US-ROCHE-1511186

PATIENT
  Age: 39 Year
  Sex: Female

DRUGS (1)
  1. ERIVEDGE [Suspect]
     Active Substance: VISMODEGIB
     Indication: BASAL CELL CARCINOMA
     Route: 065
     Dates: start: 20141205

REACTIONS (5)
  - Breast pain [Unknown]
  - Pain [Unknown]
  - Breast discharge [Unknown]
  - Breast tenderness [Unknown]
  - Nipple pain [Unknown]

NARRATIVE: CASE EVENT DATE: 20141213
